FAERS Safety Report 4464681-9 (Version None)
Quarter: 2004Q3

REPORT INFORMATION
  Report Type: 
  Country: None (occurrence: None)
  Receive Date: 20040929
  Receipt Date: 20040910
  Transmission Date: 20050211
  Serious: Yes (Hospitalization)
  Sender: FDA-Public Use
  Company Number: USA030638745

PATIENT
  Age: 75 Year
  Sex: Female
  Weight: 64 kg

DRUGS (3)
  1. FORTEO [Suspect]
     Indication: OSTEOPOROSIS
     Dosage: 20 UG/1 DAY
     Dates: start: 20030401, end: 20031001
  2. CALCIUM WITH VITAMIN D [Concomitant]
  3. LOVOXYL (LEVOTHYROXINE SODIUM) [Concomitant]

REACTIONS (6)
  - BACK PAIN [None]
  - BLOOD CALCIUM INCREASED [None]
  - CONDITION AGGRAVATED [None]
  - DIVERTICULITIS [None]
  - INJECTION SITE ERYTHEMA [None]
  - INJECTION SITE HAEMORRHAGE [None]
